FAERS Safety Report 13655398 (Version 1)
Quarter: 2017Q2

REPORT INFORMATION
  Report Type: Report from Study
  Country: US (occurrence: US)
  Receive Date: 20170615
  Receipt Date: 20170615
  Transmission Date: 20170830
  Serious: Yes (Hospitalization, Other)
  Sender: FDA-Public Use
  Company Number: US-ROCHE-1732173

PATIENT
  Age: 63 Year
  Sex: Female
  Weight: 90.8 kg

DRUGS (3)
  1. CORTIZONE 10 [Concomitant]
     Active Substance: HYDROCORTISONE
  2. ACTEMRA [Suspect]
     Active Substance: TOCILIZUMAB
     Indication: RHEUMATOID ARTHRITIS
     Dosage: INFUSION ONCE A MONTH
     Route: 058
     Dates: end: 201506
  3. ACTEMRA [Suspect]
     Active Substance: TOCILIZUMAB
     Route: 058
     Dates: start: 2015

REACTIONS (18)
  - Hip surgery [Unknown]
  - Balance disorder [Unknown]
  - Impaired healing [Recovered/Resolved]
  - Joint swelling [Unknown]
  - Fracture [Not Recovered/Not Resolved]
  - Dizziness [Unknown]
  - Asthenia [Unknown]
  - Back pain [Recovering/Resolving]
  - Pain [Recovered/Resolved]
  - Post procedural infection [Recovered/Resolved]
  - Malaise [Unknown]
  - Pain in extremity [Recovered/Resolved]
  - Insomnia [Unknown]
  - Arthralgia [Unknown]
  - Groin pain [Recovered/Resolved]
  - Arthralgia [Recovered/Resolved]
  - Lower limb fracture [Unknown]
  - Fall [Unknown]

NARRATIVE: CASE EVENT DATE: 201506
